FAERS Safety Report 7086444-0 (Version None)
Quarter: 2010Q4

REPORT INFORMATION
  Report Type: 
  Country: None (occurrence: None)
  Receive Date: 20101105
  Receipt Date: 20101028
  Transmission Date: 20110411
  Serious: Yes (Other)
  Sender: FDA-Public Use
  Company Number: GXKR2010JP12234

PATIENT
  Age: 86 Year
  Sex: Male

DRUGS (3)
  1. RIFAMPICIN [Suspect]
     Indication: PULMONARY TUBERCULOSIS
     Route: 065
  2. ETHAMBUTOL HYDROCHLORIDE [Concomitant]
     Indication: PULMONARY TUBERCULOSIS
     Route: 065
  3. ISONIAZID [Concomitant]
     Indication: PULMONARY TUBERCULOSIS
     Route: 065

REACTIONS (3)
  - PNEUMONIA [None]
  - PYREXIA [None]
  - RASH [None]
